FAERS Safety Report 24326070 (Version 1)
Quarter: 2024Q3

REPORT INFORMATION
  Report Type: Spontaneous
  Country: CH (occurrence: CH)
  Receive Date: 20240917
  Receipt Date: 20240917
  Transmission Date: 20241016
  Serious: Yes (Hospitalization)
  Sender: UCB
  Company Number: None

PATIENT
  Age: 59 Year
  Sex: Male

DRUGS (9)
  1. BRIVIACT [Suspect]
     Active Substance: BRIVARACETAM
     Indication: Epilepsy
     Dosage: 50 MILLIGRAM, 2X/DAY (BID)
     Route: 048
     Dates: start: 20240529, end: 20240530
  2. BRIVIACT [Suspect]
     Active Substance: BRIVARACETAM
     Dosage: 100 MILLIGRAM, 2X/DAY (BID) UNTIL TARGET DOSE IS REACHED
     Route: 048
     Dates: start: 20240531, end: 20240723
  3. BRIVIACT [Suspect]
     Active Substance: BRIVARACETAM
     Dosage: 100 MILLIGRAM, 2X/DAY (BID) GRADUAL WITHDRAWAL WITH 1-0-0.5
     Route: 048
     Dates: start: 20240724
  4. LAMICTAL [Concomitant]
     Active Substance: LAMOTRIGINE
     Indication: Epilepsy
     Dosage: 25 MILLIGRAM
     Route: 048
     Dates: start: 20240529, end: 202406
  5. LAMICTAL [Concomitant]
     Active Substance: LAMOTRIGINE
     Dosage: 50 MILLIGRAM, 2X/DAY (BID)
     Route: 048
     Dates: start: 202406, end: 20240727
  6. LAMICTAL [Concomitant]
     Active Substance: LAMOTRIGINE
     Dosage: 50 MILLIGRAM INCREASED TO 1-0-2
     Route: 048
     Dates: start: 20240728
  7. RIVAROXABAN [Concomitant]
     Active Substance: RIVAROXABAN
     Indication: Product used for unknown indication
     Dosage: 20 MILLIGRAM, ONCE DAILY (QD) 0-0-1
     Route: 048
     Dates: start: 20240531
  8. AMLODIPINE [Concomitant]
     Active Substance: AMLODIPINE BESYLATE
     Indication: Hypertension
     Dosage: 5 MILLIGRAM, ONCE DAILY (QD) PREVIOUSLY AS COVERAM 10/10 (PERINDOPRIL /AMLODIPINE
     Route: 048
     Dates: start: 20210308
  9. PERINDOPRIL [Concomitant]
     Active Substance: PERINDOPRIL
     Indication: Hypertension
     Dosage: 10 MILLIGRAM, ONCE DAILY (QD) (PREVIOUSLY AS COVERAM 10/10 (PERINDOPRIL /AMLODIPINE
     Route: 048
     Dates: start: 20210308

REACTIONS (2)
  - Psychomotor retardation [Unknown]
  - Cognitive disorder [Unknown]

NARRATIVE: CASE EVENT DATE: 20240529
